FAERS Safety Report 10278921 (Version 3)
Quarter: 2014Q4

REPORT INFORMATION
  Report Type: Spontaneous
  Country: US (occurrence: US)
  Receive Date: 20140706
  Receipt Date: 20141024
  Transmission Date: 20150528
  Serious: Yes (Hospitalization)
  Sender: FDA-Public Use
  Company Number: US-ELI_LILLY_AND_COMPANY-US201405003814

PATIENT
  Sex: Male

DRUGS (25)
  1. FISH OIL [Concomitant]
     Active Substance: FISH OIL
     Dosage: 1200 MG, QD
  2. MIRALAX [Concomitant]
     Active Substance: POLYETHYLENE GLYCOL 3350
     Dosage: 17 G, QD
  3. PRAVASTATIN [Concomitant]
     Active Substance: PRAVASTATIN\PRAVASTATIN SODIUM
     Dosage: 40 MG, EACH EVENING
  4. PREDNISONE. [Suspect]
     Active Substance: PREDNISONE
     Dosage: 4 DF, QD
     Route: 065
  5. XANAX [Concomitant]
     Active Substance: ALPRAZOLAM
     Dosage: 0.25 MG, 1/2 TO 1 TABLET DAILY
  6. BENAZEPRIL [Concomitant]
     Active Substance: BENAZEPRIL\BENAZEPRIL HYDROCHLORIDE
     Dosage: 20 MG, QD
  7. PREDNISONE. [Suspect]
     Active Substance: PREDNISONE
     Dosage: 3 DF, QD
     Route: 065
     Dates: end: 20140521
  8. VITAMIN B12 [Concomitant]
     Active Substance: CYANOCOBALAMIN
     Dosage: 500 UG, QD
  9. CALCIUM [Concomitant]
     Active Substance: CALCIUM
     Dosage: 600 MG, QD
  10. HUMALOG [Suspect]
     Active Substance: INSULIN LISPRO
     Dosage: 6 DF, EACH EVENING
     Route: 065
  11. ASPIRIN. [Concomitant]
     Active Substance: ASPIRIN
     Dosage: 81 MG, QD
  12. LASIX [Concomitant]
     Active Substance: FUROSEMIDE
     Dosage: 20 MG, QD
  13. HUMALOG [Suspect]
     Active Substance: INSULIN LISPRO
     Dosage: 15 U, EACH EVENING
     Route: 065
  14. HUMALOG [Suspect]
     Active Substance: INSULIN LISPRO
     Indication: DIABETES MELLITUS
     Dosage: 17 U, EACH MORNING
     Route: 065
  15. HUMALOG [Suspect]
     Active Substance: INSULIN LISPRO
     Indication: BLOOD GLUCOSE INCREASED
     Dosage: UNK
     Route: 065
  16. COUMADIN [Concomitant]
     Active Substance: WARFARIN SODIUM
  17. ALLOPURINOL. [Concomitant]
     Active Substance: ALLOPURINOL
     Dosage: 100 MG, QD
  18. OMEPRAZOLE. [Concomitant]
     Active Substance: OMEPRAZOLE
     Dosage: 20 MG, QD
  19. FLOMAX [Concomitant]
     Active Substance: TAMSULOSIN HYDROCHLORIDE
     Dosage: 0.4 MG, QD
  20. VITAMIN D [Concomitant]
     Active Substance: CHOLECALCIFEROL
     Dosage: 1000 U, QD
  21. PREDNISONE. [Suspect]
     Active Substance: PREDNISONE
     Indication: PRURITUS GENERALISED
     Dosage: 40 MG, QD
     Route: 065
     Dates: start: 20140509
  22. PREDNISONE. [Suspect]
     Active Substance: PREDNISONE
     Dosage: 5 MG, TID
     Route: 065
     Dates: start: 20140602
  23. ATENOLOL. [Concomitant]
     Active Substance: ATENOLOL
     Dosage: 50 MG, QD
  24. FOLIC ACID. [Concomitant]
     Active Substance: FOLIC ACID
     Dosage: 400 UG, QD
  25. VITAMIN C [Concomitant]
     Active Substance: ASCORBIC ACID
     Dosage: 500 MG, QD

REACTIONS (17)
  - Myopathy [Unknown]
  - Polymyalgia rheumatica [Unknown]
  - Blood glucose increased [Unknown]
  - Skin haemorrhage [Unknown]
  - Adrenal insufficiency [Unknown]
  - Drug dispensing error [Recovered/Resolved]
  - Scratch [Unknown]
  - Malaise [Unknown]
  - Red blood cell sedimentation rate increased [Unknown]
  - Rash [Unknown]
  - Fatigue [Unknown]
  - Pain [Unknown]
  - Hypoaesthesia [Unknown]
  - Pruritus generalised [Not Recovered/Not Resolved]
  - Muscular weakness [Unknown]
  - Panic reaction [Unknown]
  - Oedema peripheral [Recovering/Resolving]
